FAERS Safety Report 6609854-1 (Version None)
Quarter: 2010Q1

REPORT INFORMATION
  Report Type: 
  Country: None (occurrence: None)
  Receive Date: 20100302
  Receipt Date: 20100218
  Transmission Date: 20100710
  Serious: Yes (Death, Other)
  Sender: FDA-Public Use
  Company Number: PHHY2010JP10361

PATIENT
  Sex: Female
  Weight: 53 kg

DRUGS (7)
  1. ICL670A ICL+DISTAB [Suspect]
     Indication: IRON OVERLOAD
     Dosage: 500 MG/DAY
     Route: 048
     Dates: start: 20090122
  2. ICL670A ICL+DISTAB [Suspect]
     Indication: MYELODYSPLASTIC SYNDROME
  3. FUROSEMIDE [Concomitant]
     Dosage: 20 MG, UNK
     Route: 048
     Dates: start: 20090122, end: 20090921
  4. NITROGLYCERIN [Concomitant]
     Dosage: 5 MG, UNK
     Route: 062
     Dates: start: 20090122, end: 20090921
  5. SPIRONOLACTONE [Concomitant]
     Dosage: 25 MG, UNK
     Route: 048
     Dates: start: 20090122, end: 20090318
  6. DEPAS [Concomitant]
     Dosage: 0.5 MG, UNK
     Route: 048
     Dates: start: 20090122, end: 20090921
  7. RED BLOOD CELLS [Concomitant]
     Dosage: 4 UNITS EVERY FOUR WEEKS UNK
     Dates: start: 20090122, end: 20090921

REACTIONS (6)
  - ASCITES [None]
  - BLOOD CREATININE INCREASED [None]
  - C-REACTIVE PROTEIN INCREASED [None]
  - DEHYDRATION [None]
  - PNEUMONIA ASPIRATION [None]
  - RASH ERYTHEMATOUS [None]
